FAERS Safety Report 11875237 (Version 1)
Quarter: 2015Q4

REPORT INFORMATION
  Report Type: Spontaneous
  Country: US (occurrence: US)
  Receive Date: 20151229
  Receipt Date: 20151229
  Transmission Date: 20160305
  Serious: No
  Sender: FDA-Public Use
  Company Number: US-DEXPHARM-20151087

PATIENT
  Age: 76 Year
  Sex: Male
  Weight: 82.54 kg

DRUGS (1)
  1. OMEPRAZOLE DELAYED RELEASE [Suspect]
     Active Substance: OMEPRAZOLE
     Indication: PRODUCT USED FOR UNKNOWN INDICATION
     Dosage: 20 MG, QD
     Route: 048
     Dates: start: 2013

REACTIONS (4)
  - Constipation [Unknown]
  - Muscle spasms [Unknown]
  - Pollakiuria [Unknown]
  - Dehydration [Unknown]
